FAERS Safety Report 10083552 (Version 1)
Quarter: 2014Q2

REPORT INFORMATION
  Report Type: Spontaneous
  Country: IT (occurrence: None)
  Receive Date: 20140415
  Receipt Date: 20140415
  Transmission Date: 20141212
  Serious: Yes (Other)
  Sender: FDA-Public Use
  Company Number: COR_00039_2014

PATIENT
  Age: 4 Month
  Sex: Male

DRUGS (1)
  1. CARBOPLATIN (CARBOPLATIN) [Suspect]
     Indication: GLIOMA
     Dosage: (CUMULATIVE 36.6 MG/KG)

REACTIONS (4)
  - Diabetes insipidus [None]
  - Hypernatraemia [None]
  - Haematotoxicity [None]
  - Ileus paralytic [None]
